FAERS Safety Report 18706654 (Version 1)
Quarter: 2021Q1

REPORT INFORMATION
  Report Type: Spontaneous
  Country: US (occurrence: US)
  Receive Date: 20210106
  Receipt Date: 20210106
  Transmission Date: 20210419
  Serious: Yes (Death, Hospitalization, Other)
  Sender: FDA-Public Use
  Company Number: None

PATIENT
  Age: 79 Year
  Sex: Female
  Weight: 47.25 kg

DRUGS (9)
  1. REMICADE [Suspect]
     Active Substance: INFLIXIMAB
     Indication: CROHN^S DISEASE
     Dosage: ?          OTHER FREQUENCY:INFUSION OVER 2 HR;?
     Route: 042
     Dates: start: 20201118, end: 20201118
  2. URSODIOL. [Concomitant]
     Active Substance: URSODIOL
  3. MELATONIN [Concomitant]
     Active Substance: MELATONIN
  4. MESALAMINE. [Concomitant]
     Active Substance: MESALAMINE
  5. SYNTHROID [Concomitant]
     Active Substance: LEVOTHYROXINE SODIUM
  6. LOW DOSE ASPIRIN [Concomitant]
     Active Substance: ASPIRIN
  7. TURMERIC [Concomitant]
     Active Substance: HERBALS\TURMERIC
  8. IRON (FERROUS SULFATE) [Concomitant]
  9. TELMISARTAN. [Concomitant]
     Active Substance: TELMISARTAN

REACTIONS (6)
  - Moaning [None]
  - Asthenia [None]
  - Malaise [None]
  - Vomiting [None]
  - Intestinal ischaemia [None]
  - Pain [None]

NARRATIVE: CASE EVENT DATE: 20201202
